FAERS Safety Report 13935735 (Version 1)
Quarter: 2017Q3

REPORT INFORMATION
  Report Type: Spontaneous
  Country: US (occurrence: US)
  Receive Date: 20170905
  Receipt Date: 20170905
  Transmission Date: 20171127
  Serious: Yes (Other)
  Sender: FDA-Public Use
  Company Number: US-ROCHE-1988588

PATIENT
  Age: 90 Year
  Sex: Female
  Weight: 50.3 kg

DRUGS (2)
  1. ACTIVASE [Suspect]
     Active Substance: ALTEPLASE
     Indication: PRODUCT USED FOR UNKNOWN INDICATION
     Dosage: GIVEN AT 13:10 ;ONGOING: NO
     Route: 040
     Dates: start: 20170101
  2. ACTIVASE [Suspect]
     Active Substance: ALTEPLASE
     Dosage: GIVEN AT 13:11 ;ONGOING: NO
     Route: 041
     Dates: start: 20170101

REACTIONS (11)
  - Retching [Unknown]
  - Haemorrhage intracranial [Unknown]
  - Haemorrhage [Unknown]
  - Malaise [Unknown]
  - Anxiety [Unknown]
  - Intracranial mass [Unknown]
  - Pallor [Unknown]
  - Vomiting [Unknown]
  - Ill-defined disorder [Unknown]
  - Vascular malformation [Unknown]
  - Hyperhidrosis [Unknown]

NARRATIVE: CASE EVENT DATE: 201701
